FAERS Safety Report 16045961 (Version 4)
Quarter: 2019Q2

REPORT INFORMATION
  Report Type: Spontaneous
  Country: US (occurrence: US)
  Receive Date: 20190307
  Receipt Date: 20190426
  Transmission Date: 20190711
  Serious: Yes (Hospitalization, Other)
  Sender: FDA-Public Use
  Company Number: US-SA-2019SA060718

PATIENT
  Age: 32 Year
  Sex: Female

DRUGS (1)
  1. LEMTRADA [Suspect]
     Active Substance: ALEMTUZUMAB
     Dosage: 12 MG
     Route: 041
     Dates: start: 20190225, end: 20190226

REACTIONS (14)
  - Cough [Recovering/Resolving]
  - Dyspnoea [Recovering/Resolving]
  - Chest discomfort [Recovering/Resolving]
  - Lung infiltration [Recovering/Resolving]
  - Acute respiratory distress syndrome [Recovering/Resolving]
  - Pneumonia [Recovering/Resolving]
  - Atypical mycobacterial infection [Recovering/Resolving]
  - Rhinovirus infection [Recovering/Resolving]
  - Pulmonary oedema [Recovering/Resolving]
  - Pulmonary alveolar haemorrhage [Recovering/Resolving]
  - Haemoptysis [Recovering/Resolving]
  - Computerised tomogram thorax abnormal [Recovering/Resolving]
  - Hypersensitivity [Recovering/Resolving]
  - Arteriovenous malformation [Unknown]

NARRATIVE: CASE EVENT DATE: 20190226
